FAERS Safety Report 7725298-3 (Version None)
Quarter: 2011Q3

REPORT INFORMATION
  Report Type: 
  Country: None (occurrence: None)
  Receive Date: 20110902
  Receipt Date: 20110826
  Transmission Date: 20111222
  Serious: No
  Sender: FDA-Public Use
  Company Number: US-BIOGENIDEC-2011BI032739

PATIENT
  Age: 54 Year
  Sex: Female

DRUGS (4)
  1. TYSABRI [Concomitant]
     Indication: MULTIPLE SCLEROSIS
     Route: 042
     Dates: start: 20040201, end: 20050201
  2. AVONEX [Suspect]
     Indication: MULTIPLE SCLEROSIS
     Route: 030
     Dates: start: 20100727
  3. AVONEX [Suspect]
     Route: 030
     Dates: start: 20000120, end: 20050121
  4. TYSABRI [Concomitant]
     Route: 042
     Dates: start: 20080919, end: 20090826

REACTIONS (2)
  - DYSSTASIA [None]
  - HYPOTONIA [None]
